FAERS Safety Report 5837788-9 (Version None)
Quarter: 2008Q3

REPORT INFORMATION
  Report Type: 
  Country: None (occurrence: None)
  Receive Date: 20080806
  Receipt Date: 20080729
  Transmission Date: 20090109
  Serious: Yes (Life-Threatening, Hospitalization)
  Sender: FDA-Public Use
  Company Number: 200813685

PATIENT
  Age: 56 Year
  Sex: Female
  Weight: 65.7716 kg

DRUGS (17)
  1. VIVAGLOBIN [Suspect]
     Indication: IMMUNE SYSTEM DISORDER
     Dosage: 30 ML Q1W SC : 20 ML DAILY SC : 10 ML DAILY SC
     Route: 058
     Dates: start: 20080530, end: 20080530
  2. VIVAGLOBIN [Suspect]
     Indication: IMMUNE SYSTEM DISORDER
     Dosage: 30 ML Q1W SC : 20 ML DAILY SC : 10 ML DAILY SC
     Route: 058
     Dates: start: 20080530, end: 20080530
  3. VIVAGLOBIN [Suspect]
     Indication: IMMUNE SYSTEM DISORDER
     Dosage: 30 ML Q1W SC : 20 ML DAILY SC : 10 ML DAILY SC
     Route: 058
     Dates: start: 20071001
  4. VIVAGLOBIN [Suspect]
  5. CALAN [Concomitant]
  6. BENICAR [Concomitant]
  7. SINGULAIR [Concomitant]
  8. LIPITOR [Concomitant]
  9. ALLEGRA [Concomitant]
  10. PROTONIX [Concomitant]
  11. FOSAMAX [Concomitant]
  12. ADVAIR DISKUS 100/50 [Concomitant]
  13. COMBIVENT [Concomitant]
  14. FLONASE [Concomitant]
  15. ALBUTEROL [Concomitant]
  16. ELAVIL [Concomitant]
  17. CALCIUM CARBONATE [Concomitant]

REACTIONS (7)
  - ARRHYTHMIA [None]
  - CARDIAC FLUTTER [None]
  - CHEST PAIN [None]
  - HEADACHE [None]
  - HYPOAESTHESIA [None]
  - PARAESTHESIA [None]
  - TINNITUS [None]
